FAERS Safety Report 4988211-8 (Version None)
Quarter: 2006Q2

REPORT INFORMATION
  Report Type: 
  Country: None (occurrence: None)
  Receive Date: 20060425
  Receipt Date: 20060411
  Transmission Date: 20061013
  Serious: Yes (Hospitalization)
  Sender: FDA-Public Use
  Company Number: 2006P1000264

PATIENT
  Age: 84 Year
  Sex: Female

DRUGS (7)
  1. RETEPLASE (RETEPLASE) [Suspect]
     Indication: ACUTE MYOCARDIAL INFARCTION
     Dosage: IV
     Route: 042
     Dates: start: 20051228, end: 20051228
  2. REOPRO [Suspect]
     Indication: ACUTE MYOCARDIAL INFARCTION
  3. ASPIRIN [Concomitant]
  4. CLOPIDOGREL [Concomitant]
  5. RAMIPRIL [Concomitant]
  6. METOPROLOL [Concomitant]
  7. FLUVASTATIN [Concomitant]

REACTIONS (7)
  - ANGINA PECTORIS [None]
  - BRADYCARDIA [None]
  - CORONARY ARTERY STENOSIS [None]
  - EJECTION FRACTION DECREASED [None]
  - HAEMATOCRIT DECREASED [None]
  - HAEMOGLOBIN DECREASED [None]
  - SUBCUTANEOUS HAEMATOMA [None]
